FAERS Safety Report 9575625 (Version 1)
Quarter: 2013Q4

REPORT INFORMATION
  Report Type: Spontaneous
  Country: GB (occurrence: GB)
  Receive Date: 20131001
  Receipt Date: 20131001
  Transmission Date: 20140711
  Serious: Yes (Other)
  Sender: FDA-Public Use
  Company Number: GB-B.I. PHARMACEUTICALS,INC./RIDGEFIELD-2013-BI-30478UK

PATIENT
  Age: 65 Year
  Sex: Female
  Weight: 54.3 kg

DRUGS (19)
  1. SPIRIVA RESPIMAT [Suspect]
     Indication: CHRONIC OBSTRUCTIVE PULMONARY DISEASE
     Dosage: 18 MG
     Route: 055
     Dates: start: 20130626
  2. ADCAL-D3 [Concomitant]
     Dosage: DAILY DOSE: 2DF
  3. ATENOLOL [Concomitant]
     Dosage: 25 MG
  4. CLENIL MODULITE [Concomitant]
     Route: 055
  5. DIHYDROCODEINE [Concomitant]
     Dosage: 120 MG
  6. HYDROXYCHLOROQUINE [Concomitant]
     Dosage: 400 MG
  7. MIGRAMAX [Concomitant]
  8. MIRTAZAPINE [Concomitant]
     Dosage: 45 MG
  9. NAPROXEN [Concomitant]
     Dosage: 750 MG
  10. NITRAZEPAM [Concomitant]
     Dosage: 5 MG
  11. OMEPRAZOLE [Concomitant]
     Dosage: 20 MG
  12. OXYBUTYNIN [Concomitant]
     Dosage: 10 MG
  13. PARACETAMOL [Concomitant]
     Dosage: 500 MG
  14. PROMETHAZINE HYDROCHLORIDE [Concomitant]
     Dosage: 25 MG
  15. SALBUTAMOL [Concomitant]
     Dosage: 800 MCG
     Route: 055
  16. SALMETEROL [Concomitant]
     Route: 055
  17. FLUTICASONE [Concomitant]
     Route: 055
  18. SULFASALAZINE [Concomitant]
     Dosage: 2000 MG
  19. TRAMADOL [Concomitant]
     Dosage: 400 MG

REACTIONS (3)
  - Sensory disturbance [Not Recovered/Not Resolved]
  - Hypoaesthesia [Not Recovered/Not Resolved]
  - Paraesthesia [Not Recovered/Not Resolved]
